FAERS Safety Report 17859264 (Version 10)
Quarter: 2021Q2

REPORT INFORMATION
  Report Type: Spontaneous
  Country: IT (occurrence: IT)
  Receive Date: 20200604
  Receipt Date: 20210506
  Transmission Date: 20210717
  Serious: Yes (Other)
  Sender: FDA-Public Use
  Company Number: NVSC2020IT151799

PATIENT
  Age: 73 Year
  Sex: Male
  Weight: 114 kg

DRUGS (105)
  1. PERINDOPRIL [Suspect]
     Active Substance: PERINDOPRIL
     Dosage: UNK
     Route: 065
  2. LASIX [Suspect]
     Active Substance: FUROSEMIDE
     Indication: PRODUCT USED FOR UNKNOWN INDICATION
     Dosage: 25 MG
     Route: 048
  3. ROCALTROL [Suspect]
     Active Substance: CALCITRIOL
     Dosage: 3 DF
     Route: 048
  4. ASPIRINE [Suspect]
     Active Substance: ASPIRIN
     Indication: PRODUCT USED FOR UNKNOWN INDICATION
     Dosage: 100 MG
     Route: 007
  5. ASPIRINE [Suspect]
     Active Substance: ASPIRIN
     Dosage: 100 MG
     Route: 007
  6. ALLOPURINOLO [Suspect]
     Active Substance: ALLOPURINOL
     Dosage: 100 MG
     Route: 048
  7. ALLOPURINOLO [Suspect]
     Active Substance: ALLOPURINOL
     Dosage: 100 MG
     Route: 048
  8. CALCITRIOLO DOC [Suspect]
     Active Substance: CALCITRIOL
     Indication: PRODUCT USED FOR UNKNOWN INDICATION
     Dosage: 3 DF
     Route: 048
  9. CALCITRIOLO DOC [Suspect]
     Active Substance: CALCITRIOL
     Dosage: 0.25 DF
     Route: 048
  10. CALCITRIOLO DOC [Suspect]
     Active Substance: CALCITRIOL
     Dosage: UNK
     Route: 048
  11. ELIQUIS [Suspect]
     Active Substance: APIXABAN
     Indication: ATRIAL FIBRILLATION
     Dosage: 90 MG
     Route: 048
  12. ELIQUIS [Suspect]
     Active Substance: APIXABAN
     Dosage: 84.4 MG
     Route: 048
  13. PERINDOPRIL ERBUMINE. [Suspect]
     Active Substance: PERINDOPRIL ERBUMINE
     Indication: PRODUCT USED FOR UNKNOWN INDICATION
     Dosage: 4 MG
     Route: 065
  14. ROCALTROL [Suspect]
     Active Substance: CALCITRIOL
     Dosage: UNK
     Route: 048
  15. ROCALTROL [Suspect]
     Active Substance: CALCITRIOL
     Dosage: 0.25 MG
     Route: 048
  16. ROCALTROL [Suspect]
     Active Substance: CALCITRIOL
     Dosage: UNK
     Route: 048
  17. ROCALTROL [Suspect]
     Active Substance: CALCITRIOL
     Dosage: 0.25 MG
     Route: 048
  18. ALLOPURINOL TEVA [Suspect]
     Active Substance: ALLOPURINOL
     Dosage: 100 MG
     Route: 048
  19. ALLOPURINOL TEVA [Suspect]
     Active Substance: ALLOPURINOL
     Dosage: 100 MG
     Route: 048
  20. ALLOPURINOLO [Suspect]
     Active Substance: ALLOPURINOL
     Dosage: 100 MG
     Route: 048
  21. CALCITRIOLO DOC [Suspect]
     Active Substance: CALCITRIOL
     Dosage: UNK
     Route: 048
  22. CALCITRIOLO DOC [Suspect]
     Active Substance: CALCITRIOL
     Dosage: 0.25 MG
     Route: 065
  23. ELIQUIS [Suspect]
     Active Substance: APIXABAN
     Indication: PROPHYLAXIS
     Dosage: 10 MG, 1X/DAY
     Route: 048
     Dates: start: 20141031, end: 20200227
  24. AMLODIPINE BESILATE [Suspect]
     Active Substance: AMLODIPINE BESYLATE
     Dosage: 4 MG
     Route: 065
  25. ROCALTROL [Suspect]
     Active Substance: CALCITRIOL
     Dosage: UNK
     Route: 048
  26. ROCALTROL [Suspect]
     Active Substance: CALCITRIOL
     Dosage: UNK
     Route: 048
  27. ASPIRINE [Suspect]
     Active Substance: ASPIRIN
     Dosage: 100 MG
     Route: 065
  28. NORVASC [Suspect]
     Active Substance: AMLODIPINE BESYLATE
     Dosage: UNK
     Route: 065
  29. NORVASC [Suspect]
     Active Substance: AMLODIPINE BESYLATE
     Dosage: 4 MG
     Route: 065
  30. ALLOPURINOL TEVA [Suspect]
     Active Substance: ALLOPURINOL
     Dosage: 100 MG
     Route: 048
  31. ALLOPURINOL TEVA [Suspect]
     Active Substance: ALLOPURINOL
     Dosage: 100 MG
     Route: 048
  32. ALLOPURINOLO [Suspect]
     Active Substance: ALLOPURINOL
     Dosage: 100 MG
     Route: 048
  33. ALLOPURINOLO [Suspect]
     Active Substance: ALLOPURINOL
     Dosage: 100 MG
     Route: 048
  34. CALCITRIOLO DOC [Suspect]
     Active Substance: CALCITRIOL
     Dosage: UNK
     Route: 048
  35. CALCITRIOLO DOC [Suspect]
     Active Substance: CALCITRIOL
     Dosage: UNK
     Route: 048
  36. CALCITRIOLO DOC [Suspect]
     Active Substance: CALCITRIOL
     Dosage: UNK
     Route: 048
  37. CALCITRIOLO DOC [Suspect]
     Active Substance: CALCITRIOL
     Dosage: UNK
     Route: 048
  38. CALCITRIOLO DOC [Suspect]
     Active Substance: CALCITRIOL
     Dosage: UNK
     Route: 048
  39. CALCITRIOLO DOC [Suspect]
     Active Substance: CALCITRIOL
     Dosage: 0.25 DF
     Route: 048
  40. PERINDOPRIL ALMUS [Suspect]
     Active Substance: PERINDOPRIL
     Dosage: 4 MG
     Route: 065
  41. PERINDOPRIL ALMUS [Suspect]
     Active Substance: PERINDOPRIL
     Dosage: 4 MG
     Route: 065
  42. ROCALTROL [Suspect]
     Active Substance: CALCITRIOL
     Indication: PRODUCT USED FOR UNKNOWN INDICATION
     Dosage: 0.25 MG
     Route: 048
  43. ROCALTROL [Suspect]
     Active Substance: CALCITRIOL
     Dosage: 0.25 MG
     Route: 048
  44. ROCALTROL [Suspect]
     Active Substance: CALCITRIOL
     Dosage: UNK
     Route: 048
  45. ASPIRINE [Suspect]
     Active Substance: ASPIRIN
     Dosage: 100 MG
     Route: 065
  46. ASPIRINE [Suspect]
     Active Substance: ASPIRIN
     Dosage: 100 MG
     Route: 007
  47. ASPIRINE [Suspect]
     Active Substance: ASPIRIN
     Dosage: 100 MG
     Route: 065
  48. CALCITRIOLO DOC [Suspect]
     Active Substance: CALCITRIOL
     Dosage: UNK
     Route: 048
  49. CALCITRIOLO DOC [Suspect]
     Active Substance: CALCITRIOL
     Dosage: UNK
     Route: 048
  50. CALCITRIOLO DOC [Suspect]
     Active Substance: CALCITRIOL
     Dosage: UNK
     Route: 048
  51. CALCITRIOLO DOC [Suspect]
     Active Substance: CALCITRIOL
     Dosage: UNK
     Route: 048
  52. ELIQUIS [Suspect]
     Active Substance: APIXABAN
     Dosage: 84.4 MG
     Route: 048
  53. PERINDOPRIL ERBUMINE. [Suspect]
     Active Substance: PERINDOPRIL ERBUMINE
     Dosage: 4 MG
     Route: 065
  54. PERINDOPRIL ERBUMINE. [Suspect]
     Active Substance: PERINDOPRIL ERBUMINE
     Dosage: 4 MG
     Route: 065
  55. PERINDOPRIL ALMUS [Suspect]
     Active Substance: PERINDOPRIL
     Indication: PRODUCT USED FOR UNKNOWN INDICATION
     Dosage: 4 MG
     Route: 065
  56. ALLOPURINOLO [Suspect]
     Active Substance: ALLOPURINOL
     Dosage: 100 MG
     Route: 048
  57. TAMSULOSINA AUROBINDO [Suspect]
     Active Substance: TAMSULOSIN HYDROCHLORIDE
     Indication: PRODUCT USED FOR UNKNOWN INDICATION
     Dosage: 0.4 MG
     Route: 065
  58. CALCITRIOLO DOC [Suspect]
     Active Substance: CALCITRIOL
     Dosage: UNK
     Route: 048
  59. ELIQUIS [Suspect]
     Active Substance: APIXABAN
     Indication: CEREBROVASCULAR ACCIDENT PROPHYLAXIS
     Dosage: 84.4 MG
     Route: 048
  60. AMLODIPINE BESILATE [Suspect]
     Active Substance: AMLODIPINE BESYLATE
     Indication: PRODUCT USED FOR UNKNOWN INDICATION
     Dosage: UNK
     Route: 065
  61. ROCALTROL [Suspect]
     Active Substance: CALCITRIOL
     Dosage: 0.25 MG
     Route: 048
  62. ROCALTROL [Suspect]
     Active Substance: CALCITRIOL
     Dosage: UNK
     Route: 048
  63. ROCALTROL [Suspect]
     Active Substance: CALCITRIOL
     Dosage: 0.25 MG
     Route: 048
  64. ROCALTROL [Suspect]
     Active Substance: CALCITRIOL
     Dosage: 0.25 MG
     Route: 048
  65. ASPIRINE [Suspect]
     Active Substance: ASPIRIN
     Dosage: 100 MG
     Route: 065
  66. CARDIOASPIRIN [Suspect]
     Active Substance: ASPIRIN
     Indication: PRODUCT USED FOR UNKNOWN INDICATION
     Dosage: 100 MG
     Route: 065
  67. ALLOPURINOL TEVA [Suspect]
     Active Substance: ALLOPURINOL
     Indication: PRODUCT USED FOR UNKNOWN INDICATION
     Dosage: 100 MG
     Route: 048
  68. ALLOPURINOL TEVA [Suspect]
     Active Substance: ALLOPURINOL
     Dosage: UNK
     Route: 048
  69. ASPIRIN (E.C.) [Suspect]
     Active Substance: ASPIRIN
     Indication: PRODUCT USED FOR UNKNOWN INDICATION
     Dosage: 4 MG
     Route: 065
  70. CALCITRIOLO DOC [Suspect]
     Active Substance: CALCITRIOL
     Dosage: 0.25 MG
     Route: 065
  71. CALCITRIOLO DOC [Suspect]
     Active Substance: CALCITRIOL
     Dosage: 3 DF
     Route: 065
  72. ELIQUIS [Suspect]
     Active Substance: APIXABAN
     Dosage: 84.4 MG
     Route: 048
  73. PERINDOPRIL ERBUMINE. [Suspect]
     Active Substance: PERINDOPRIL ERBUMINE
     Dosage: 4 MG
     Route: 065
  74. ATENOLOL. [Suspect]
     Active Substance: ATENOLOL
     Indication: PRODUCT USED FOR UNKNOWN INDICATION
     Dosage: 100 MG
     Route: 048
  75. AMLODIPINE BESILATE [Suspect]
     Active Substance: AMLODIPINE BESYLATE
     Dosage: UNK
     Route: 065
  76. LASIX [Suspect]
     Active Substance: FUROSEMIDE
     Dosage: UNK
     Route: 065
  77. ROCALTROL [Suspect]
     Active Substance: CALCITRIOL
     Dosage: UNK
     Route: 048
  78. ROCALTROL [Suspect]
     Active Substance: CALCITRIOL
     Dosage: 0.25 MG
     Route: 048
  79. CARDIOASPIRIN [Suspect]
     Active Substance: ASPIRIN
     Dosage: UNK
     Route: 065
  80. CARDIOASPIRIN [Suspect]
     Active Substance: ASPIRIN
     Dosage: 100 MG
     Route: 065
  81. NORVASC [Suspect]
     Active Substance: AMLODIPINE BESYLATE
     Dosage: UNK
     Route: 065
  82. ALLOPURINOLO [Suspect]
     Active Substance: ALLOPURINOL
     Indication: PRODUCT USED FOR UNKNOWN INDICATION
     Dosage: 100 MG
     Route: 048
  83. ALLOPURINOLO [Suspect]
     Active Substance: ALLOPURINOL
     Dosage: 100 MG
     Route: 048
  84. ALLOPURINOLO [Suspect]
     Active Substance: ALLOPURINOL
     Dosage: 100 MG
     Route: 048
  85. ALLOPURINOLO [Suspect]
     Active Substance: ALLOPURINOL
     Dosage: 100 MG
     Route: 048
  86. ALLOPURINOLO [Suspect]
     Active Substance: ALLOPURINOL
     Dosage: 100 MG
     Route: 048
  87. CALCITRIOLO DOC [Suspect]
     Active Substance: CALCITRIOL
     Dosage: UNK
     Route: 048
  88. CALCITRIOLO DOC [Suspect]
     Active Substance: CALCITRIOL
     Dosage: UNK
     Route: 048
  89. CALCITRIOLO DOC [Suspect]
     Active Substance: CALCITRIOL
     Dosage: 0.25 DF
     Route: 048
  90. PERINDOPRIL ERBUMINE. [Suspect]
     Active Substance: PERINDOPRIL ERBUMINE
     Dosage: 4 MG
     Route: 065
  91. LANSOPRAZOLE. [Suspect]
     Active Substance: LANSOPRAZOLE
     Indication: PRODUCT USED FOR UNKNOWN INDICATION
     Dosage: 15 MG
     Route: 065
  92. LANSOPRAZOLE. [Suspect]
     Active Substance: LANSOPRAZOLE
     Dosage: 15 MG
     Route: 065
  93. AMLODIPINE BESILATE [Suspect]
     Active Substance: AMLODIPINE BESYLATE
     Dosage: UNK
     Route: 065
  94. AMLODIPINE BESILATE [Suspect]
     Active Substance: AMLODIPINE BESYLATE
     Dosage: 4 MG
     Route: 065
  95. PERINDOPRIL [Suspect]
     Active Substance: PERINDOPRIL
     Indication: PRODUCT USED FOR UNKNOWN INDICATION
     Dosage: 4 MG
     Route: 065
  96. ROCALTROL [Suspect]
     Active Substance: CALCITRIOL
     Dosage: UNK
     Route: 048
  97. ROCALTROL [Suspect]
     Active Substance: CALCITRIOL
     Dosage: UNK
     Route: 048
  98. NORVASC [Suspect]
     Active Substance: AMLODIPINE BESYLATE
     Indication: PRODUCT USED FOR UNKNOWN INDICATION
     Dosage: UNK
     Route: 065
  99. ALLOPURINOL TEVA [Suspect]
     Active Substance: ALLOPURINOL
     Dosage: 100 MG
     Route: 048
  100. CALCITRIOLO DOC [Suspect]
     Active Substance: CALCITRIOL
     Dosage: 3 DF
     Route: 065
  101. CALCITRIOLO DOC [Suspect]
     Active Substance: CALCITRIOL
     Dosage: UNK
     Route: 048
  102. CALCITRIOLO DOC [Suspect]
     Active Substance: CALCITRIOL
     Dosage: UNK
     Route: 048
  103. CALCITRIOLO DOC [Suspect]
     Active Substance: CALCITRIOL
     Dosage: UNK
     Route: 048
  104. CALCITRIOLO DOC [Suspect]
     Active Substance: CALCITRIOL
     Dosage: 3 DF
     Route: 065
  105. CALCITRIOLO DOC [Suspect]
     Active Substance: CALCITRIOL
     Dosage: 3 DF
     Route: 065

REACTIONS (3)
  - Prescribed overdose [Unknown]
  - Haematochezia [Recovering/Resolving]
  - Off label use [Unknown]

NARRATIVE: CASE EVENT DATE: 20141108
